FAERS Safety Report 26044139 (Version 1)
Quarter: 2025Q4

REPORT INFORMATION
  Report Type: Spontaneous
  Country: US (occurrence: US)
  Receive Date: 20251114
  Receipt Date: 20251114
  Transmission Date: 20260117
  Serious: Yes (Hospitalization, Other)
  Sender: TEVA
  Company Number: US-TEVA-VS-3392246

PATIENT

DRUGS (1)
  1. ZOLPIDEM [Suspect]
     Active Substance: ZOLPIDEM TARTRATE
     Indication: Sleep disorder
     Dosage: AMBIEN
     Route: 065
     Dates: start: 20100814

REACTIONS (5)
  - Cardiac arrest [Recovered/Resolved]
  - Somnambulism [Recovered/Resolved]
  - Near drowning [Recovered/Resolved]
  - Coma [Recovered/Resolved]
  - Angina pectoris [Unknown]

NARRATIVE: CASE EVENT DATE: 20100814
